FAERS Safety Report 6100587-7 (Version None)
Quarter: 2009Q1

REPORT INFORMATION
  Report Type: 
  Country: None (occurrence: None)
  Receive Date: 20090220
  Receipt Date: 20090215
  Transmission Date: 20090719
  Serious: Yes (Other)
  Sender: FDA-Public Use
  Company Number: CHPA2009US04468

PATIENT
  Age: 56 Year
  Sex: Female
  Weight: 90.7 kg

DRUGS (3)
  1. VOLTAREN [Suspect]
     Indication: ARTHRALGIA
     Dosage: ONCE OR TWICE DAILY, TOPICAL
     Route: 061
     Dates: start: 20090201, end: 20090201
  2. METFORMIN HCL [Concomitant]
  3. NIFEDIPINE [Concomitant]

REACTIONS (4)
  - BLISTER [None]
  - PRURITUS [None]
  - RASH PAPULAR [None]
  - WRONG TECHNIQUE IN DRUG USAGE PROCESS [None]
